FAERS Safety Report 14635129 (Version 2)
Quarter: 2018Q3

REPORT INFORMATION
  Report Type: Report from Study
  Country: IT (occurrence: IT)
  Receive Date: 20180314
  Receipt Date: 20180704
  Transmission Date: 20181010
  Serious: Yes (Hospitalization, Other)
  Sender: FDA-Public Use
  Company Number: IT-GLAXOSMITHKLINE-IT2018038882

PATIENT
  Age: 17 Year
  Sex: Female

DRUGS (4)
  1. MOMENT [Suspect]
     Active Substance: IBUPROFEN
     Indication: DRUG ABUSE
     Dosage: IN TOTAL
     Route: 048
     Dates: start: 20180111, end: 20180111
  2. LEXOTAN [Suspect]
     Active Substance: BROMAZEPAM
     Indication: DRUG ABUSE
     Dosage: IN TOTAL
     Route: 048
     Dates: start: 20180111, end: 20180111
  3. VOLTADVANCE [Suspect]
     Active Substance: DICLOFENAC SODIUM
     Indication: DRUG ABUSE
     Dosage: IN TOTAL
     Route: 048
     Dates: start: 20180111, end: 20180111
  4. PARACETAMOL [Suspect]
     Active Substance: ACETAMINOPHEN
     Indication: PRODUCT USED FOR UNKNOWN INDICATION
     Dosage: IN TOTAL
     Route: 065
     Dates: start: 20180111, end: 20180111

REACTIONS (2)
  - Drug abuse [Recovered/Resolved]
  - Psychomotor hyperactivity [Recovered/Resolved]

NARRATIVE: CASE EVENT DATE: 20180111
